FAERS Safety Report 4384974-3 (Version None)
Quarter: 2004Q2

REPORT INFORMATION
  Report Type: 
  Country: None (occurrence: None)
  Receive Date: 20040625
  Receipt Date: 20040602
  Transmission Date: 20050107
  Serious: Yes (Hospitalization)
  Sender: FDA-Public Use
  Company Number: PHBS2004JP07397

PATIENT
  Age: 72 Year
  Sex: Male

DRUGS (22)
  1. ANAFRANIL [Suspect]
     Indication: DEPRESSION
     Dosage: 30 MG/D
     Route: 048
  2. ANAFRANIL [Suspect]
     Dosage: 50 MG/D
     Route: 048
  3. PAXIL [Suspect]
     Indication: DEPRESSION
     Dosage: 10 MG/D
     Route: 048
  4. PAXIL [Suspect]
     Dosage: 20 MG/D
     Route: 048
  5. HYDROXYZINE [Concomitant]
     Dosage: 25 MG/D
     Route: 065
  6. SULPIRIDE [Concomitant]
     Dosage: 100 MG/D
     Route: 065
  7. TIAPRIDE [Concomitant]
     Dosage: 50 MG/D
     Route: 065
  8. MIANSERIN [Concomitant]
     Dosage: 20 MG/D
     Route: 065
  9. MIANSERIN [Concomitant]
     Dosage: 40 MG/D
     Route: 065
  10. MIANSERIN [Concomitant]
     Dosage: 10 MG/D
  11. MIANSERIN [Concomitant]
     Dosage: 30 MG/D
  12. MAPROTILINE HYDROCHLORIDE [Suspect]
     Indication: DEPRESSION
     Dosage: 50 MG/D
  13. ALPRAZOLAM [Concomitant]
  14. ZOPICLONE [Concomitant]
  15. NITRAZEPAM [Concomitant]
  16. FLUNITRAZEPAM [Concomitant]
  17. MEROPENEM [Concomitant]
  18. AZACTAM [Concomitant]
  19. THEOPHYLLINE [Concomitant]
  20. FAMOTIDINE [Concomitant]
  21. DIAZEPAM [Concomitant]
     Dosage: 6 MG/D
  22. QUAZEPAM [Concomitant]
     Dosage: 15 MG/D

REACTIONS (22)
  - ABNORMAL BEHAVIOUR [None]
  - ABULIA [None]
  - ANOREXIA [None]
  - ANXIETY [None]
  - BEDRIDDEN [None]
  - BLOOD CORTISOL INCREASED [None]
  - BLUNTED AFFECT [None]
  - DECREASED ACTIVITY [None]
  - DEHYDRATION [None]
  - DELIRIUM [None]
  - DEPRESSION [None]
  - DISORIENTATION [None]
  - HYPONATRAEMIA [None]
  - INAPPROPRIATE ANTIDIURETIC HORMONE SECRETION [None]
  - INSOMNIA [None]
  - MALAISE [None]
  - NAUSEA [None]
  - PNEUMONIA [None]
  - PYREXIA [None]
  - RESPIRATORY DISTRESS [None]
  - SLEEP PHASE RHYTHM DISTURBANCE [None]
  - SUICIDAL IDEATION [None]
